FAERS Safety Report 5354070-7 (Version None)
Quarter: 2007Q2

REPORT INFORMATION
  Report Type: 
  Country: None (occurrence: None)
  Receive Date: 20070612
  Receipt Date: 20070607
  Transmission Date: 20071010
  Serious: Yes (Other)
  Sender: FDA-Public Use
  Company Number: A0654909A

PATIENT
  Age: 58 Year
  Sex: Male

DRUGS (7)
  1. AVANDIA [Suspect]
     Indication: DRUG USE FOR UNKNOWN INDICATION
     Dosage: 4MG PER DAY
     Route: 048
  2. ALTACE [Concomitant]
     Dosage: 10MG PER DAY
  3. FELODIPINE [Concomitant]
     Dosage: 10MG PER DAY
  4. FENOFIBRATE [Concomitant]
     Dosage: 200MG UNKNOWN
     Route: 048
  5. GLYBURIDE [Concomitant]
     Dosage: 5MG TWICE PER DAY
  6. PLAVIX [Concomitant]
     Dosage: 75MG PER DAY
  7. VITAMIN E [Concomitant]
     Dosage: 400UNIT PER DAY

REACTIONS (3)
  - CARDIAC FAILURE [None]
  - MYOCARDIAL INFARCTION [None]
  - PULMONARY OEDEMA [None]
